FAERS Safety Report 15669121 (Version 1)
Quarter: 2018Q4

REPORT INFORMATION
  Report Type: Spontaneous
  Country: IT (occurrence: IT)
  Receive Date: 20181129
  Receipt Date: 20181129
  Transmission Date: 20190205
  Serious: Yes (Other)
  Sender: FDA-Public Use
  Company Number: IT-ACCORD-094257

PATIENT
  Age: 56 Year
  Sex: Male

DRUGS (2)
  1. FLUOROURACIL. [Suspect]
     Active Substance: FLUOROURACIL
     Indication: COLON NEOPLASM
     Route: 040
     Dates: start: 20171204, end: 20171204
  2. CAMPTO [Suspect]
     Active Substance: IRINOTECAN
     Indication: COLON NEOPLASM
     Route: 042
     Dates: start: 20171204, end: 20171204

REACTIONS (2)
  - Anaemia [Unknown]
  - Leukopenia [Unknown]

NARRATIVE: CASE EVENT DATE: 20171211
